FAERS Safety Report 5187977-4 (Version None)
Quarter: 2006Q4

REPORT INFORMATION
  Report Type: 
  Country: None (occurrence: None)
  Receive Date: 20061215
  Receipt Date: 20061215
  Transmission Date: 20070319
  Serious: Yes (Other)
  Sender: FDA-Public Use
  Company Number: None

PATIENT
  Age: 39 Year
  Sex: Male
  Weight: 81.6 kg

DRUGS (1)
  1. CEFTRIAXONE [Suspect]

REACTIONS (3)
  - ANXIETY [None]
  - BRONCHOSPASM [None]
  - DYSPEPSIA [None]
